FAERS Safety Report 22057678 (Version 1)
Quarter: 2023Q1

REPORT INFORMATION
  Report Type: Other
  Country: PK (occurrence: None)
  Receive Date: 20230303
  Receipt Date: 20230303
  Transmission Date: 20230418
  Serious: Yes (Death, Hospitalization)
  Sender: FDA-Public Use
  Company Number: PK-ROCHE-3297307

PATIENT
  Age: 56 Year
  Sex: Male

DRUGS (1)
  1. RITUXIMAB [Suspect]
     Active Substance: RITUXIMAB
     Indication: Follicular lymphoma
     Route: 041
     Dates: start: 20220610, end: 20221024

REACTIONS (2)
  - Neoplasm malignant [Fatal]
  - Malaise [Fatal]

NARRATIVE: CASE EVENT DATE: 20221106
